FAERS Safety Report 6419462-3 (Version None)
Quarter: 2009Q4

REPORT INFORMATION
  Report Type: 
  Country: None (occurrence: None)
  Receive Date: 20091027
  Receipt Date: 20091015
  Transmission Date: 20100525
  Serious: Yes (Death, Hospitalization)
  Sender: FDA-Public Use
  Company Number: 2009-04310

PATIENT
  Age: 61 Year
  Sex: Female

DRUGS (1)
  1. VELCADE [Suspect]
     Indication: MULTIPLE MYELOMA

REACTIONS (5)
  - BODY TINEA [None]
  - BRONCHOPNEUMONIA [None]
  - HYPERKERATOSIS [None]
  - PATHOLOGICAL FRACTURE [None]
  - SEPSIS [None]
